FAERS Safety Report 5043784-4 (Version None)
Quarter: 2006Q2

REPORT INFORMATION
  Report Type: 
  Country: None (occurrence: None)
  Receive Date: 20060629
  Receipt Date: 20060615
  Transmission Date: 20061013
  Serious: Yes (Other)
  Sender: FDA-Public Use
  Company Number: 2006US001285

PATIENT

DRUGS (9)
  1. AMBISOME [Suspect]
     Indication: DRUG USE FOR UNKNOWN INDICATION
  2. AMPICILLIN [Concomitant]
  3. PANTOZOL             (PANTOPRAZOLE SODIUM) [Concomitant]
  4. DIPIRONA           (METAMIZOLE) [Concomitant]
  5. ENOXAPARIN SODIUM [Concomitant]
  6. AMIODARONE HCL [Concomitant]
  7. MERONEM       (MEROPENEM) [Concomitant]
  8. LASIX [Concomitant]
  9. ALPRAZOLAM [Concomitant]

REACTIONS (1)
  - STEVENS-JOHNSON SYNDROME [None]
